FAERS Safety Report 5534017-0 (Version None)
Quarter: 2007Q4

REPORT INFORMATION
  Report Type: 
  Country: None (occurrence: None)
  Receive Date: 20071205
  Receipt Date: 20071203
  Transmission Date: 20080405
  Serious: Yes (Hospitalization, Other)
  Sender: FDA-Public Use
  Company Number: US-RB-007622-07

PATIENT
  Sex: Female

DRUGS (7)
  1. SUBOXONE [Suspect]
     Route: 060
     Dates: start: 20070808, end: 20071101
  2. SUBOXONE [Suspect]
     Dosage: RSM STOPPED TAKING SUBOXONE FOR A COUPLE DAYS IN THE BEGINNING OF AUGUST 2007. THEN RESTARTED AGAIN.
     Route: 060
     Dates: start: 20070401, end: 20070807
  3. SUBOXONE [Suspect]
     Route: 060
     Dates: start: 20071101
  4. HYDROCODONE BITARTRATE [Suspect]
     Indication: DRUG USE FOR UNKNOWN INDICATION
     Dosage: DOSE UNKNOWN
     Route: 048
     Dates: start: 20070801, end: 20070801
  5. REGLAN [Concomitant]
     Dosage: DOSE UNKNOWN
     Route: 048
  6. PROZAC [Concomitant]
     Indication: PANIC DISORDER
     Dosage: DOSE UNKNOWN
     Route: 048
  7. PHENERGAN HCL [Concomitant]
     Indication: NAUSEA
     Dosage: DOSE UNKNOWN
     Route: 048

REACTIONS (6)
  - AMNESIA [None]
  - DRUG EXPOSURE DURING PREGNANCY [None]
  - HALLUCINATION [None]
  - INSOMNIA [None]
  - RESPIRATORY DISTRESS [None]
  - VOMITING [None]
